FAERS Safety Report 4951384-7 (Version None)
Quarter: 2006Q1

REPORT INFORMATION
  Report Type: 
  Country: None (occurrence: None)
  Receive Date: 20060317
  Receipt Date: 20060302
  Transmission Date: 20060701
  Serious: Yes (Hospitalization)
  Sender: FDA-Public Use
  Company Number: 2006031367

PATIENT
  Age: 87 Year
  Sex: Female

DRUGS (9)
  1. MACUGEN [Suspect]
     Indication: MACULAR DEGENERATION
     Dates: start: 20050101, end: 20060120
  2. OXYBUTIN (OXYBUTYNIN HYDROCHLORIDE) [Concomitant]
  3. NEXIUM [Concomitant]
  4. HYZAAR [Concomitant]
  5. LEVOTHROID [Concomitant]
  6. LIPITOR [Concomitant]
  7. CALCIUM GLUCONATE [Concomitant]
  8. MULTIVITAMIN [Concomitant]
  9. ICAPS (MINERALS NOS, VITAMINS NOS) [Concomitant]

REACTIONS (1)
  - IDIOPATHIC THROMBOCYTOPENIC PURPURA [None]
